FAERS Safety Report 7491405-3 (Version None)
Quarter: 2011Q2

REPORT INFORMATION
  Report Type: 
  Country: None (occurrence: None)
  Receive Date: 20110519
  Receipt Date: 20110505
  Transmission Date: 20111010
  Serious: Yes (Hospitalization, Other)
  Sender: FDA-Public Use
  Company Number: PHHY2011CA39543

PATIENT
  Weight: 70 kg

DRUGS (9)
  1. ACTONEL [Concomitant]
     Dosage: UNK
     Dates: start: 20060101, end: 20090101
  2. HRT [Concomitant]
  3. EVISTA [Concomitant]
     Dosage: 670 MG, QD
  4. FORTEO [Concomitant]
     Dosage: 20 MG, QD
  5. DIDROCAL [Concomitant]
     Dosage: 400 MG, QD
  6. VITAMIN D [Concomitant]
     Dosage: 400 MG, BID
     Dates: start: 20010101
  7. ZOLEDRONIC ACID [Suspect]
     Dosage: 5 MG,
     Route: 042
     Dates: start: 20090811
  8. CALCIUM CARBONATE [Concomitant]
     Dosage: 500 MG, BID
  9. MIACALCIN [Concomitant]
     Dosage: 200 IU,
     Route: 045

REACTIONS (2)
  - STERNAL FRACTURE [None]
  - RIB FRACTURE [None]
